FAERS Safety Report 5620504-3 (Version None)
Quarter: 2008Q1

REPORT INFORMATION
  Report Type: 
  Country: None (occurrence: None)
  Receive Date: 20080208
  Receipt Date: 20080206
  Transmission Date: 20080703
  Serious: Yes (Life-Threatening)
  Sender: FDA-Public Use
  Company Number: JP-BOEHRINGER INGELHEIM GMBH, GERMANY-2008-BP-01899NB

PATIENT
  Sex: Female
  Weight: 45 kg

DRUGS (7)
  1. BI-SIFROL TABLETS [Suspect]
     Indication: PARKINSON'S DISEASE
     Route: 048
     Dates: start: 20060120, end: 20060924
  2. CARBIDOPA AND LEVODOPA [Concomitant]
     Indication: PARKINSON'S DISEASE
     Route: 048
     Dates: start: 19940201
  3. GASTER [Concomitant]
     Indication: GASTRIC ULCER
     Route: 048
     Dates: start: 20060719
  4. OLMETEC [Concomitant]
     Indication: HYPERTENSION
     Route: 048
     Dates: start: 20060726
  5. NORVASC [Concomitant]
     Route: 048
     Dates: start: 20060726
  6. MAGMITT [Concomitant]
     Route: 048
     Dates: start: 20060801
  7. SYMMETREL [Concomitant]
     Route: 048
     Dates: start: 20060803

REACTIONS (2)
  - ACUTE RESPIRATORY FAILURE [None]
  - SHOCK [None]
